FAERS Safety Report 24374159 (Version 1)
Quarter: 2024Q3

REPORT INFORMATION
  Report Type: Spontaneous
  Country: US (occurrence: US)
  Receive Date: 20240927
  Receipt Date: 20240927
  Transmission Date: 20241016
  Serious: Yes (Life-Threatening)
  Sender: PFIZER
  Company Number: US-PFIZER INC-PV202400123250

PATIENT
  Age: 70 Year
  Sex: Male
  Weight: 85 kg

DRUGS (7)
  1. HEPARIN SODIUM [Interacting]
     Active Substance: HEPARIN SODIUM
     Indication: Aortic aneurysm repair
     Dosage: UNK (8000 U, BOLUS 11:49 PM AND 12:04 AM)
  2. HEPARIN SODIUM [Interacting]
     Active Substance: HEPARIN SODIUM
     Indication: Embolism
     Dosage: UNK (6000 U, BOLUS)
  3. ANDEXANET ALFA [Interacting]
     Active Substance: ANDEXANET ALFA
     Indication: Aortic aneurysm rupture
     Dosage: 400 MG
     Route: 042
  4. ANDEXANET ALFA [Interacting]
     Active Substance: ANDEXANET ALFA
     Indication: Coagulopathy
     Dosage: UNK (4 MG/MIN)
     Route: 042
  5. ANDEXANET ALFA [Interacting]
     Active Substance: ANDEXANET ALFA
     Indication: Haemorrhage
  6. RIVAROXABAN [Concomitant]
     Active Substance: RIVAROXABAN
     Indication: Atrial fibrillation
     Dosage: 20 MG, DAILY
     Route: 048
  7. RIVAROXABAN [Concomitant]
     Active Substance: RIVAROXABAN
     Indication: Aortic aneurysm rupture

REACTIONS (2)
  - Heparin resistance [Unknown]
  - Drug interaction [Unknown]
